FAERS Safety Report 5924249-1 (Version None)
Quarter: 2008Q4

REPORT INFORMATION
  Report Type: 
  Country: None (occurrence: None)
  Receive Date: 20081015
  Receipt Date: 20081008
  Transmission Date: 20090506
  Serious: Yes (Other)
  Sender: FDA-Public Use
  Company Number: LTI2008A00276

PATIENT
  Age: 79 Year
  Sex: Male

DRUGS (8)
  1. ACTOS [Suspect]
     Indication: TYPE 2 DIABETES MELLITUS
     Dosage: 30 MG (15 MG, 2 IN 1 D) ORAL
     Route: 048
     Dates: start: 20080901
  2. METFORMIN HCL [Concomitant]
  3. HYDROCHLOROTHIAZIDE [Concomitant]
  4. OLMESARTAN MEDOXOMIL [Concomitant]
  5. ZOCOR [Concomitant]
  6. ASPIRIN [Concomitant]
  7. DAFLON (DIOSMIN) [Concomitant]
  8. EUPRESSYL (URAPIDIL) [Concomitant]

REACTIONS (5)
  - HAEMATOCRIT INCREASED [None]
  - HAEMOGLOBIN INCREASED [None]
  - HYPERKALAEMIA [None]
  - POLYCYTHAEMIA [None]
  - RED BLOOD CELL COUNT INCREASED [None]
